FAERS Safety Report 18315449 (Version 1)
Quarter: 2020Q3

REPORT INFORMATION
  Report Type: Other
  Country: CA (occurrence: CA)
  Receive Date: 20200926
  Receipt Date: 20200926
  Transmission Date: 20201103
  Serious: Yes (Other)
  Sender: FDA-Public Use
  Company Number: CA-CELLTRION INC.-2020CA027255

PATIENT

DRUGS (5)
  1. FOLIC ACID. [Concomitant]
     Active Substance: FOLIC ACID
     Dosage: 10.0 MILLIGRAM, 1 EVERY 1 DAYS
     Route: 065
  2. RITUXIMAB (UNKNOWN) [Suspect]
     Active Substance: RITUXIMAB
     Indication: ANTI-NEUTROPHIL CYTOPLASMIC ANTIBODY POSITIVE VASCULITIS
  3. RITUXIMAB (UNKNOWN) [Suspect]
     Active Substance: RITUXIMAB
     Indication: GRANULOMATOSIS WITH POLYANGIITIS
     Dosage: 1 EVERY 6 MONTHS
     Route: 042
  4. SERTRALINE [Concomitant]
     Active Substance: SERTRALINE HYDROCHLORIDE
     Dosage: 50.0 MILLIGRAM, 1 EVERY 1 DAYS
     Route: 065
  5. BACTRIM [Concomitant]
     Active Substance: SULFAMETHOXAZOLE\TRIMETHOPRIM
     Dosage: 3 EVERY 1 WEEKS
     Route: 065

REACTIONS (14)
  - Amenorrhoea [Recovered/Resolved]
  - Menorrhagia [Recovered/Resolved]
  - Depression [Recovered/Resolved]
  - Arthralgia [Recovered/Resolved]
  - Fatigue [Recovered/Resolved]
  - Off label use [Unknown]
  - Methylenetetrahydrofolate reductase gene mutation [Recovered/Resolved]
  - Headache [Recovered/Resolved]
  - Cataract subcapsular [Recovered/Resolved]
  - Coeliac disease [Recovered/Resolved]
  - Magnetic resonance imaging brain abnormal [Recovered/Resolved]
  - Mastocytoma [Recovered/Resolved]
  - Hyperhomocysteinaemia [Recovered/Resolved]
  - Dyspnoea exertional [Recovered/Resolved]
